FAERS Safety Report 5893656-8 (Version None)
Quarter: 2008Q3

REPORT INFORMATION
  Report Type: 
  Country: None (occurrence: None)
  Receive Date: 20080923
  Receipt Date: 20071004
  Transmission Date: 20090109
  Serious: No
  Sender: FDA-Public Use
  Company Number: US-ASTRAZENECA-2007UW23117

PATIENT
  Age: 57 Year
  Sex: Female
  Weight: 70.8 kg

DRUGS (3)
  1. SEROQUEL [Suspect]
     Indication: SLEEP DISORDER
     Route: 048
     Dates: start: 20070928
  2. HORMONE REPLACEMENT [Concomitant]
  3. SYNTHROID [Concomitant]

REACTIONS (3)
  - HEADACHE [None]
  - SINUS CONGESTION [None]
  - SINUSITIS [None]
